FAERS Safety Report 4888006-X (Version None)
Quarter: 2006Q1

REPORT INFORMATION
  Report Type: 
  Country: None (occurrence: None)
  Receive Date: 20060123
  Receipt Date: 20051004
  Transmission Date: 20060701
  Serious: Yes (Hospitalization)
  Sender: FDA-Public Use
  Company Number: US-MERCK-0510USA03878

PATIENT
  Age: 52 Year
  Sex: Female
  Weight: 86 kg

DRUGS (29)
  1. CELEBREX [Concomitant]
     Indication: OSTEOARTHRITIS
     Route: 065
     Dates: start: 19990901, end: 20000201
  2. HYDROCODONE HYDROCHLORIDE [Concomitant]
     Route: 065
  3. QUININE SULFATE [Concomitant]
     Indication: MUSCLE SPASMS
     Route: 065
  4. ULTRAM [Concomitant]
     Indication: PAIN
     Route: 065
     Dates: start: 20010101
  5. VICODIN [Concomitant]
     Indication: PAIN
     Route: 065
  6. BENICAR HCT [Concomitant]
     Indication: HYPERTENSION
     Route: 065
  7. FLONASE [Concomitant]
     Indication: HYPERSENSITIVITY
     Route: 065
  8. HYDROCHLOROTHIAZIDE [Concomitant]
     Indication: OEDEMA
     Route: 048
  9. LEXAPRO [Concomitant]
     Indication: DEPRESSION
     Route: 065
  10. METFORMIN [Concomitant]
     Indication: DIABETES MELLITUS
     Route: 065
  11. PREMARIN [Concomitant]
     Indication: HORMONE LEVEL ABNORMAL
     Route: 065
     Dates: start: 20000101
  12. INSULIN [Concomitant]
     Indication: DIABETES MELLITUS
     Route: 065
  13. ACIPHEX [Concomitant]
     Indication: GASTRIC DISORDER
     Route: 065
  14. GLUCOTROL [Concomitant]
     Indication: DIABETES MELLITUS
     Route: 065
  15. SEROQUEL [Concomitant]
     Indication: DEPRESSION
     Route: 065
  16. TRICOR [Concomitant]
     Indication: BLOOD CHOLESTEROL INCREASED
     Route: 065
     Dates: start: 20040101
  17. ZOCOR [Concomitant]
     Indication: BLOOD CHOLESTEROL INCREASED
     Route: 065
     Dates: start: 20000101, end: 20040101
  18. [THERAPY UNSPECIFIED] [Concomitant]
     Indication: DIABETES MELLITUS
     Route: 065
  19. GLUCOPHAGE [Concomitant]
     Indication: DIABETES MELLITUS
     Route: 065
  20. [THERAPY UNSPECIFIED] [Concomitant]
     Indication: CONVULSION
     Route: 065
  21. COZAAR [Concomitant]
     Indication: HYPERTENSION
     Route: 048
     Dates: start: 20010101
  22. CAPOTEN [Concomitant]
     Indication: HYPERTENSION
     Route: 065
     Dates: start: 20010101
  23. [THERAPY UNSPECIFIED] [Concomitant]
     Indication: DYSPEPSIA
     Route: 065
  24. HUMULIN [Concomitant]
     Indication: DIABETES MELLITUS
     Route: 065
  25. VIOXX [Suspect]
     Indication: OSTEOARTHRITIS
     Route: 048
     Dates: start: 20000201, end: 20041001
  26. ACETAMINOPHEN [Concomitant]
     Indication: PAIN
     Route: 065
  27. ADVIL [Concomitant]
     Indication: PAIN
     Route: 065
  28. ADVIL [Concomitant]
     Indication: OSTEOARTHRITIS
     Route: 065
  29. BEXTRA [Concomitant]
     Indication: OSTEOARTHRITIS
     Route: 065
     Dates: start: 20030101, end: 20030101

REACTIONS (3)
  - ANGINA PECTORIS [None]
  - ARTERIOSCLEROSIS [None]
  - DEEP VEIN THROMBOSIS [None]
